FAERS Safety Report 25235964 (Version 1)
Quarter: 2025Q2

REPORT INFORMATION
  Report Type: Spontaneous
  Country: FR (occurrence: FR)
  Receive Date: 20250424
  Receipt Date: 20250424
  Transmission Date: 20250717
  Serious: Yes (Hospitalization)
  Sender: MYLAN
  Company Number: None

PATIENT
  Age: 29 Year
  Sex: Female

DRUGS (20)
  1. TRAMADOL [Suspect]
     Active Substance: TRAMADOL
     Indication: Product used for unknown indication
     Dosage: UNK UNK, QD (UP TO 400 MG/DAY)
     Dates: start: 2018
  2. TRAMADOL [Suspect]
     Active Substance: TRAMADOL
     Dosage: UNK UNK, QD (UP TO 400 MG/DAY)
     Route: 048
     Dates: start: 2018
  3. TRAMADOL [Suspect]
     Active Substance: TRAMADOL
     Dosage: UNK UNK, QD (UP TO 400 MG/DAY)
     Route: 048
     Dates: start: 2018
  4. TRAMADOL [Suspect]
     Active Substance: TRAMADOL
     Dosage: UNK UNK, QD (UP TO 400 MG/DAY)
     Dates: start: 2018
  5. ACETAMINOPHEN [Suspect]
     Active Substance: ACETAMINOPHEN
     Indication: Product used for unknown indication
     Dates: start: 20250327, end: 20250327
  6. ACETAMINOPHEN [Suspect]
     Active Substance: ACETAMINOPHEN
     Route: 048
     Dates: start: 20250327, end: 20250327
  7. ACETAMINOPHEN [Suspect]
     Active Substance: ACETAMINOPHEN
     Route: 048
     Dates: start: 20250327, end: 20250327
  8. ACETAMINOPHEN [Suspect]
     Active Substance: ACETAMINOPHEN
     Dates: start: 20250327, end: 20250327
  9. ALPRAZOLAM [Suspect]
     Active Substance: ALPRAZOLAM
     Indication: Product used for unknown indication
     Dates: start: 20250327, end: 20250327
  10. ALPRAZOLAM [Suspect]
     Active Substance: ALPRAZOLAM
     Route: 048
     Dates: start: 20250327, end: 20250327
  11. ALPRAZOLAM [Suspect]
     Active Substance: ALPRAZOLAM
     Route: 048
     Dates: start: 20250327, end: 20250327
  12. ALPRAZOLAM [Suspect]
     Active Substance: ALPRAZOLAM
     Dates: start: 20250327, end: 20250327
  13. FLURBIPROFEN [Suspect]
     Active Substance: FLURBIPROFEN
     Indication: Product used for unknown indication
     Dates: start: 20250327, end: 20250327
  14. FLURBIPROFEN [Suspect]
     Active Substance: FLURBIPROFEN
     Route: 048
     Dates: start: 20250327, end: 20250327
  15. FLURBIPROFEN [Suspect]
     Active Substance: FLURBIPROFEN
     Route: 048
     Dates: start: 20250327, end: 20250327
  16. FLURBIPROFEN [Suspect]
     Active Substance: FLURBIPROFEN
     Dates: start: 20250327, end: 20250327
  17. ALCOHOL [Suspect]
     Active Substance: ALCOHOL
     Indication: Product used for unknown indication
     Dates: start: 20250327, end: 20250328
  18. ALCOHOL [Suspect]
     Active Substance: ALCOHOL
     Route: 048
     Dates: start: 20250327, end: 20250328
  19. ALCOHOL [Suspect]
     Active Substance: ALCOHOL
     Route: 048
     Dates: start: 20250327, end: 20250328
  20. ALCOHOL [Suspect]
     Active Substance: ALCOHOL
     Dates: start: 20250327, end: 20250328

REACTIONS (5)
  - Drug abuse [Recovering/Resolving]
  - Suicidal ideation [Recovering/Resolving]
  - Poisoning deliberate [Recovered/Resolved]
  - Depression [Recovering/Resolving]
  - Anxiety [Recovering/Resolving]

NARRATIVE: CASE EVENT DATE: 20250327
